FAERS Safety Report 22251318 (Version 3)
Quarter: 2023Q2

REPORT INFORMATION
  Report Type: Report from Study
  Country: US (occurrence: US)
  Receive Date: 20230425
  Receipt Date: 20230512
  Transmission Date: 20230722
  Serious: Yes (Death)
  Sender: FDA-Public Use
  Company Number: US-JNJFOC-20230440805

PATIENT
  Age: 35 Year
  Sex: Female

DRUGS (11)
  1. SPRAVATO [Suspect]
     Active Substance: ESKETAMINE
     Indication: Depression
     Dosage: 56 MG, 1 TOTAL DOSES
     Dates: start: 20230307, end: 20230307
  2. SPRAVATO [Suspect]
     Active Substance: ESKETAMINE
     Indication: Major depression
     Dosage: 84 MG, 8 TOTAL DOSES
     Dates: start: 20230310, end: 20230403
  3. SPRAVATO [Suspect]
     Active Substance: ESKETAMINE
     Dosage: 84 MG, 1 TOTAL DOSES
     Dates: start: 20230411, end: 20230411
  4. SEROQUEL [Concomitant]
     Active Substance: QUETIAPINE FUMARATE
  5. BUSPAR [Concomitant]
     Active Substance: BUSPIRONE HYDROCHLORIDE
  6. ZALEPLON [Concomitant]
     Active Substance: ZALEPLON
  7. PREGABALIN [Concomitant]
     Active Substance: PREGABALIN
  8. DULOXETINE [Concomitant]
     Active Substance: DULOXETINE
  9. ABILIFY [Concomitant]
     Active Substance: ARIPIPRAZOLE
  10. NALTREXONE [Concomitant]
     Active Substance: NALTREXONE
  11. TIZANIDINE [Concomitant]
     Active Substance: TIZANIDINE

REACTIONS (1)
  - Death [Fatal]
